FAERS Safety Report 5363608-5 (Version None)
Quarter: 2007Q2

REPORT INFORMATION
  Report Type: 
  Country: None (occurrence: None)
  Receive Date: 20070620
  Receipt Date: 20070618
  Transmission Date: 20071010
  Serious: Yes (Other)
  Sender: FDA-Public Use
  Company Number: B0475489A

PATIENT
  Age: 16 Year
  Sex: Male
  Weight: 71 kg

DRUGS (3)
  1. ZOVIRAX [Suspect]
     Indication: VARICELLA
     Dosage: 1.6G FIVE TIMES PER DAY
     Route: 048
     Dates: start: 20070515, end: 20070517
  2. CALONAL [Concomitant]
     Route: 048
  3. ZINC OXIDE OINTMENT [Concomitant]
     Route: 061

REACTIONS (7)
  - DIZZINESS [None]
  - EYE MOVEMENT DISORDER [None]
  - FALL [None]
  - LOSS OF CONSCIOUSNESS [None]
  - NYSTAGMUS [None]
  - PYREXIA [None]
  - SYNCOPE [None]
